FAERS Safety Report 17014372 (Version 5)
Quarter: 2020Q4

REPORT INFORMATION
  Report Type: Other
  Country: JP (occurrence: JP)
  Receive Date: 20191111
  Receipt Date: 20201217
  Transmission Date: 20210113
  Serious: Yes (Life-Threatening, Other)
  Sender: FDA-Public Use
  Company Number: JP-ROCHE-2467553

PATIENT
  Age: 84 Year
  Sex: Female
  Weight: 30 kg

DRUGS (19)
  1. METOCLOPRAMIDE. [Concomitant]
     Active Substance: METOCLOPRAMIDE
     Dosage: WHEN THERE IS A VOMITURITION
     Route: 048
  2. TRAVATAN Z [Concomitant]
     Active Substance: TRAVOPROST
     Dosage: UNCERTAIN DOSAGE AND OCULUS SINISTERA
     Route: 031
     Dates: start: 20190729
  3. TULOBUTEROL [Concomitant]
     Active Substance: TULOBUTEROL
     Dosage: DOSAGE IS UNCERTAIN.
     Route: 061
     Dates: start: 20190729
  4. POLARAMINE [Concomitant]
     Active Substance: DEXCHLORPHENIRAMINE MALEATE
     Dosage: DOSAGE IS UNCERTAIN.
     Route: 041
  5. CEFZON (JAPAN) [Concomitant]
     Route: 048
     Dates: start: 20190902
  6. SYMPROIC [Concomitant]
     Active Substance: NALDEMEDINE
     Route: 048
     Dates: start: 20190909
  7. THEO-DUR [Concomitant]
     Active Substance: THEOPHYLLINE ANHYDROUS
     Route: 048
     Dates: start: 20190729
  8. OXYCODONE [Concomitant]
     Active Substance: OXYCODONE
     Dosage: DOSAGE IS UNCERTAIN.
     Route: 048
     Dates: start: 20190909
  9. XYZAL [Concomitant]
     Active Substance: LEVOCETIRIZINE DIHYDROCHLORIDE
     Route: 048
  10. THEOPHYLLINE [Concomitant]
     Active Substance: THEOPHYLLINE ANHYDROUS
     Route: 048
  11. TECENTRIQ [Suspect]
     Active Substance: ATEZOLIZUMAB
     Indication: NON-SMALL CELL LUNG CANCER
     Route: 041
     Dates: start: 20190729, end: 20190930
  12. VERAPAMIL HYDROCHLORIDE. [Concomitant]
     Active Substance: VERAPAMIL HYDROCHLORIDE
     Dosage: AT TREPIDATIO CORDIS
     Route: 048
     Dates: start: 2019
  13. CALONAL [Concomitant]
     Active Substance: ACETAMINOPHEN
     Dosage: AT THE PAIN
     Route: 048
     Dates: start: 2019
  14. KEYTRUDA [Suspect]
     Active Substance: PEMBROLIZUMAB
     Indication: NON-SMALL CELL LUNG CANCER
     Dosage: DOSAGE IS UNCERTAIN.
     Route: 041
     Dates: start: 20181217, end: 20190708
  15. KARY UNI [Concomitant]
     Active Substance: PIRENOXINE
     Dosage: UNCERTAIN DOSAGE AND OCULUS UTERQUE
     Route: 031
     Dates: start: 20190708
  16. LOXONIN [Concomitant]
     Active Substance: LOXOPROFEN SODIUM
     Route: 061
     Dates: start: 20190819
  17. LOXONIN [Concomitant]
     Active Substance: LOXOPROFEN SODIUM
     Dosage: AT THE THERMACOGENESIS AND THE PAIN
     Route: 048
     Dates: start: 2019
  18. AUGMENTIN [Concomitant]
     Active Substance: AMOXICILLIN\CLAVULANATE POTASSIUM
     Route: 048
     Dates: start: 20190819
  19. OXINORM (JAPAN) [Concomitant]
     Active Substance: OXYCODONE HYDROCHLORIDE
     Dosage: AT THE PAIN
     Route: 048

REACTIONS (7)
  - Transient ischaemic attack [Recovered/Resolved]
  - Internal carotid artery deformity [Unknown]
  - Seizure [Unknown]
  - Carotid artery stenosis [Unknown]
  - Encephalopathy [Not Recovered/Not Resolved]
  - Myoclonic epilepsy [Unknown]
  - Altered state of consciousness [Unknown]

NARRATIVE: CASE EVENT DATE: 20191023
